FAERS Safety Report 6894940-1 (Version None)
Quarter: 2010Q3

REPORT INFORMATION
  Report Type: 
  Country: None (occurrence: None)
  Receive Date: 20100802
  Receipt Date: 20100726
  Transmission Date: 20110219
  Serious: Yes (Life-Threatening, Hospitalization)
  Sender: FDA-Public Use
  Company Number: NL-ROCHE-717542

PATIENT
  Weight: 64 kg

DRUGS (5)
  1. CAPECITABINE [Suspect]
     Indication: GASTRIC CANCER
     Dosage: ROUTE, DOSE, FREQUENCY AS PER PROTOCOL. ON DAY 1 AND 14 AS PROTOCOL
     Route: 048
     Dates: start: 20100712, end: 20100720
  2. EPIRUBICIN [Suspect]
     Indication: GASTRIC CANCER
     Dosage: ON DAY 1 . ROUTE, DOSE FREQUENCY AS PER PROTOCOL.
     Route: 042
     Dates: start: 20100712, end: 20100720
  3. CISPLATIN [Suspect]
     Indication: GASTRIC CANCER
     Dosage: ON DAY 1 . ROUTE, FREQUENCY, DOSE AS PER PROTOCOL
     Route: 042
     Dates: start: 20100712, end: 20100720
  4. ATENOLOL [Concomitant]
     Dosage: FREQUENCY: 1 DD SINCE YEARS
     Route: 048
  5. HCT [Concomitant]
     Route: 048

REACTIONS (4)
  - DIABETES MELLITUS [None]
  - DIARRHOEA [None]
  - NAUSEA [None]
  - VOMITING [None]
